FAERS Safety Report 7651346-5 (Version None)
Quarter: 2011Q3

REPORT INFORMATION
  Report Type: 
  Country: None (occurrence: None)
  Receive Date: 20110802
  Receipt Date: 20110720
  Transmission Date: 20111222
  Serious: Yes (Hospitalization, Other)
  Sender: FDA-Public Use
  Company Number: PHHY2011BR66716

PATIENT
  Sex: Male

DRUGS (2)
  1. CAPTOPRIL [Concomitant]
  2. RASILEZ [Suspect]

REACTIONS (5)
  - VOMITING [None]
  - BLOOD PRESSURE DECREASED [None]
  - SYNCOPE [None]
  - FALL [None]
  - BLOOD PRESSURE SYSTOLIC INCREASED [None]
